FAERS Safety Report 6067559-2 (Version None)
Quarter: 2009Q1

REPORT INFORMATION
  Report Type: 
  Country: None (occurrence: None)
  Receive Date: 20090205
  Receipt Date: 20090127
  Transmission Date: 20090719
  Serious: Yes (Other)
  Sender: FDA-Public Use
  Company Number: CA-ABBOTT-09P-028-0499965-00

PATIENT
  Sex: Female
  Weight: 53.118 kg

DRUGS (2)
  1. HUMIRA [Suspect]
     Indication: CROHN'S DISEASE
     Dosage: 80 MG LOADING DOSE
  2. HUMIRA [Suspect]

REACTIONS (4)
  - ABDOMINAL PAIN [None]
  - GASTROINTESTINAL HAEMORRHAGE [None]
  - HAEMORRHAGE [None]
  - RECTAL HAEMORRHAGE [None]
